FAERS Safety Report 20100425 (Version 4)
Quarter: 2021Q4

REPORT INFORMATION
  Report Type: Report from Study
  Country: CO (occurrence: US)
  Receive Date: 20211123
  Receipt Date: 20211216
  Transmission Date: 20220303
  Serious: Yes (Hospitalization, Other)
  Sender: FDA-Public Use
  Company Number: CO-ABBVIE-21K-036-4166375-00

PATIENT
  Sex: Male
  Weight: 58 kg

DRUGS (3)
  1. VENCLEXTA [Suspect]
     Active Substance: VENETOCLAX
     Indication: Chronic lymphocytic leukaemia
     Route: 048
     Dates: start: 20210427, end: 20211111
  2. OBINUTUZUMAB [Suspect]
     Active Substance: OBINUTUZUMAB
     Indication: Chronic lymphocytic leukaemia
     Route: 065
  3. AMIODARONE [Concomitant]
     Active Substance: AMIODARONE
     Indication: Coronary artery disease
     Route: 048

REACTIONS (13)
  - Hypoaesthesia [Not Recovered/Not Resolved]
  - Mobility decreased [Not Recovered/Not Resolved]
  - General physical health deterioration [Not Recovered/Not Resolved]
  - Pyrexia [Not Recovered/Not Resolved]
  - Platelet count decreased [Recovering/Resolving]
  - Nausea [Not Recovered/Not Resolved]
  - Hypotension [Not Recovered/Not Resolved]
  - Malaise [Recovering/Resolving]
  - Feeling cold [Not Recovered/Not Resolved]
  - Bone pain [Not Recovered/Not Resolved]
  - Decreased appetite [Not Recovered/Not Resolved]
  - Asthenia [Not Recovered/Not Resolved]
  - Dizziness [Not Recovered/Not Resolved]

NARRATIVE: CASE EVENT DATE: 20210101
